FAERS Safety Report 19083813 (Version 2)
Quarter: 2021Q2

REPORT INFORMATION
  Report Type: Spontaneous
  Country: US (occurrence: US)
  Receive Date: 20210401
  Receipt Date: 20210420
  Transmission Date: 20210717
  Serious: No
  Sender: FDA-Public Use
  Company Number: US-ASCEND THERAPEUTICS US, LLC-2108776

PATIENT
  Sex: Female

DRUGS (7)
  1. ESTROGEL [Suspect]
     Active Substance: ESTRADIOL
     Route: 065
  2. PROGESTERONE?DAILY DOSE: DECREASED DOSE OF PROGESTERONE BY HALF [Suspect]
     Active Substance: PROGESTERONE
     Route: 065
  3. ESTRACE [Suspect]
     Active Substance: ESTRADIOL
     Route: 065
  4. ESTROGEL [Suspect]
     Active Substance: ESTRADIOL
     Route: 065
  5. ESTROGEL [Suspect]
     Active Substance: ESTRADIOL
     Indication: OSTEOPOROSIS
     Route: 065
  6. ESTROGEL [Suspect]
     Active Substance: ESTRADIOL
  7. ESTROGEL [Suspect]
     Active Substance: ESTRADIOL
     Indication: HOT FLUSH
     Route: 065

REACTIONS (3)
  - Vaginal haemorrhage [Unknown]
  - Intentional product use issue [None]
  - Off label use [None]
